FAERS Safety Report 17220220 (Version 2)
Quarter: 2020Q1

REPORT INFORMATION
  Report Type: Spontaneous
  Country: GB (occurrence: GB)
  Receive Date: 20191231
  Receipt Date: 20200110
  Transmission Date: 20200409
  Serious: Yes (Hospitalization)
  Sender: FDA-Public Use
  Company Number: GB-ALNYLAM PHARMACEUTICALS, INC.-ALN-2019-001008

PATIENT
  Age: 71 Year
  Sex: Male

DRUGS (1)
  1. ONPATTRO [Suspect]
     Active Substance: PATISIRAN SODIUM
     Indication: HEREDITARY NEUROPATHIC AMYLOIDOSIS
     Dosage: 27 MILLIGRAM, Q3W
     Route: 042
     Dates: start: 20190111

REACTIONS (3)
  - Musculoskeletal stiffness [Unknown]
  - Cellulitis [Unknown]
  - Product administration error [Unknown]

NARRATIVE: CASE EVENT DATE: 20191213
